FAERS Safety Report 23863373 (Version 1)
Quarter: 2024Q2

REPORT INFORMATION
  Report Type: Spontaneous
  Country: US (occurrence: US)
  Receive Date: 20240516
  Receipt Date: 20240516
  Transmission Date: 20240716
  Serious: Yes (Hospitalization, Other)
  Sender: FDA-Public Use
  Company Number: None

PATIENT
  Age: 38 Year
  Sex: Female

DRUGS (7)
  1. BUDESONIDE [Suspect]
     Active Substance: BUDESONIDE
     Indication: Chronic rhinosinusitis with nasal polyps
     Dosage: LOCAL IMMUNOSUPPRESSION OF THE TISSUE?LOCAL USE
     Route: 050
     Dates: start: 202208
  2. DECADRON [Suspect]
     Active Substance: DEXAMETHASONE
     Indication: Chronic rhinosinusitis with nasal polyps
     Dosage: INTRA-OPERATIVELY
     Route: 042
     Dates: start: 202208
  3. TRIAMCINOLONE [Suspect]
     Active Substance: TRIAMCINOLONE
     Indication: Chronic rhinosinusitis with nasal polyps
     Dosage: NASAL PACKING
     Route: 045
     Dates: start: 202208
  4. PREDNISONE [Suspect]
     Active Substance: PREDNISONE
     Indication: Chronic rhinosinusitis with nasal polyps
     Route: 048
     Dates: start: 202208, end: 202208
  5. PREDNISONE [Suspect]
     Active Substance: PREDNISONE
     Dosage: TAPER
     Route: 048
     Dates: start: 202208, end: 202208
  6. PREDNISONE [Suspect]
     Active Substance: PREDNISONE
     Dosage: TAPER
     Route: 048
     Dates: start: 202208, end: 202208
  7. PREDNISONE [Suspect]
     Active Substance: PREDNISONE
     Dosage: TAPER
     Route: 048
     Dates: start: 202208, end: 202208

REACTIONS (5)
  - Orbital infection [Recovered/Resolved]
  - Mucormycosis [Recovered/Resolved]
  - Sinusitis fungal [Recovered/Resolved]
  - Systemic mycosis [Recovered/Resolved]
  - Pupillary reflex impaired [Recovered/Resolved]

NARRATIVE: CASE EVENT DATE: 20220812
